FAERS Safety Report 20113649 (Version 1)
Quarter: 2021Q4

REPORT INFORMATION
  Report Type: Spontaneous
  Country: US (occurrence: US)
  Receive Date: 20211125
  Receipt Date: 20211125
  Transmission Date: 20220303
  Serious: Yes (Hospitalization, Congenital Anomaly, Other)
  Sender: FDA-Public Use
  Company Number: US-TEVA-2021-US-1976743

PATIENT
  Sex: Male

DRUGS (61)
  1. ACTIQ [Suspect]
     Active Substance: FENTANYL CITRATE
     Indication: Complex regional pain syndrome
     Route: 064
     Dates: start: 200207
  2. ACTIQ [Suspect]
     Active Substance: FENTANYL CITRATE
     Indication: Complex regional pain syndrome
  3. ACETAMINOPHEN\HYDROCODONE [Suspect]
     Active Substance: ACETAMINOPHEN\HYDROCODONE
     Indication: Complex regional pain syndrome
     Dosage: 5/500MG
     Route: 064
     Dates: start: 200107, end: 2001
  4. ACETAMINOPHEN\HYDROCODONE [Suspect]
     Active Substance: ACETAMINOPHEN\HYDROCODONE
     Indication: Complex regional pain syndrome
     Dosage: 7.5/750MG
     Route: 064
     Dates: start: 200108, end: 2001
  5. ACETAMINOPHEN\HYDROCODONE [Suspect]
     Active Substance: ACETAMINOPHEN\HYDROCODONE
     Dosage: 10/325MG
     Route: 064
     Dates: start: 200109, end: 2003
  6. ACETAMINOPHEN\HYDROCODONE [Suspect]
     Active Substance: ACETAMINOPHEN\HYDROCODONE
     Dosage: 10/325MG
     Route: 064
     Dates: start: 200110, end: 2001
  7. ACETAMINOPHEN\HYDROCODONE [Suspect]
     Active Substance: ACETAMINOPHEN\HYDROCODONE
     Dosage: 10-325 MG
     Route: 064
     Dates: start: 200205
  8. ACETAMINOPHEN\HYDROCODONE [Suspect]
     Active Substance: ACETAMINOPHEN\HYDROCODONE
     Indication: Abdominal pain
     Dosage: 1 DOSAGE FORMS DAILY; 5/500MG
     Route: 064
     Dates: start: 20000807
  9. FENTANYL [Suspect]
     Active Substance: FENTANYL
     Indication: Abdominal pain
     Route: 064
     Dates: start: 20001129
  10. FENTANYL [Suspect]
     Active Substance: FENTANYL
     Dosage: 50MCG/ML
     Route: 064
     Dates: start: 20000807
  11. ACETAMINOPHEN\OXYCODONE HYDROCHLORIDE [Suspect]
     Active Substance: ACETAMINOPHEN\OXYCODONE HYDROCHLORIDE
     Indication: Abdominal pain
     Dosage: 325MG
     Route: 064
     Dates: start: 20000602, end: 20000808
  12. AMPICILLIN [Suspect]
     Active Substance: AMPICILLIN
     Route: 064
     Dates: start: 2005
  13. MEPERIDINE [Suspect]
     Active Substance: MEPERIDINE
     Indication: Pain
     Route: 064
     Dates: start: 20000824
  14. MEPERIDINE [Suspect]
     Active Substance: MEPERIDINE
     Dosage: DOSE AS REQUIRED, 500MG/50ML, ALSO INTRAMUSCULAR
     Route: 064
     Dates: start: 20001129, end: 20001210
  15. MEPERIDINE [Suspect]
     Active Substance: MEPERIDINE
     Dosage: 500MG/50ML PCA
     Route: 064
     Dates: start: 20011220
  16. MEPERIDINE [Suspect]
     Active Substance: MEPERIDINE
     Route: 064
     Dates: start: 20000606
  17. MEPERIDINE [Suspect]
     Active Substance: MEPERIDINE
     Dosage: 500MG/50ML
     Route: 064
     Dates: start: 20011228, end: 20011229
  18. DURAGESIC [Suspect]
     Active Substance: FENTANYL
     Indication: Complex regional pain syndrome
     Dosage: 25MICROGRAM/HR
     Route: 064
     Dates: start: 200112, end: 2002
  19. DURAGESIC [Suspect]
     Active Substance: FENTANYL
     Indication: Complex regional pain syndrome
     Dosage: 50MICROGRAM/HR
     Route: 064
     Dates: start: 20020324, end: 2002
  20. DURAGESIC [Suspect]
     Active Substance: FENTANYL
     Dosage: -APR-2002 TO -APR-2004, -AUG-2004, 100MCG/HR
     Route: 064
     Dates: start: 200204
  21. NORCO [Suspect]
     Active Substance: ACETAMINOPHEN\HYDROCODONE BITARTRATE
     Indication: Complex regional pain syndrome
     Dosage: 10/325MG
     Route: 064
     Dates: start: 200108
  22. NORCO [Suspect]
     Active Substance: ACETAMINOPHEN\HYDROCODONE BITARTRATE
     Indication: Complex regional pain syndrome
  23. NORCO [Suspect]
     Active Substance: ACETAMINOPHEN\HYDROCODONE BITARTRATE
     Indication: Back pain
  24. ACETAMINOPHEN\HYDROCODONE [Suspect]
     Active Substance: ACETAMINOPHEN\HYDROCODONE
     Indication: Complex regional pain syndrome
     Dosage: 10/325MG
     Route: 064
     Dates: start: 200407, end: 2004
  25. ACETAMINOPHEN\HYDROCODONE [Suspect]
     Active Substance: ACETAMINOPHEN\HYDROCODONE
     Indication: Complex regional pain syndrome
  26. ACETAMINOPHEN\HYDROCODONE [Suspect]
     Active Substance: ACETAMINOPHEN\HYDROCODONE
     Indication: Complex regional pain syndrome
     Dosage: 7.5/750MG
     Route: 064
     Dates: start: 200209, end: 2002
  27. ACETAMINOPHEN\HYDROCODONE [Suspect]
     Active Substance: ACETAMINOPHEN\HYDROCODONE
     Indication: Complex regional pain syndrome
  28. MORPHINE [Suspect]
     Active Substance: MORPHINE
     Indication: Abdominal pain
     Dosage: 2MG/ML, 10MG/ML, PCA, DOSE AS REQUIRED
     Route: 064
     Dates: start: 20000803, end: 20000808
  29. MORPHINE [Suspect]
     Active Substance: MORPHINE
     Dosage: PCA, DOSE AS REQUIRED
     Route: 064
     Dates: start: 20001128, end: 20001130
  30. DEMEROL [Suspect]
     Active Substance: MEPERIDINE HYDROCHLORIDE
     Indication: Back pain
     Route: 064
     Dates: start: 20011129, end: 200112
  31. DEMEROL [Suspect]
     Active Substance: MEPERIDINE HYDROCHLORIDE
     Dosage: 500/50 PCA, DOSE AS REQUIRED
     Route: 064
     Dates: start: 20011220
  32. DEMEROL [Suspect]
     Active Substance: MEPERIDINE HYDROCHLORIDE
     Dosage: 500/50 PCA, DOSE AS REQUIRED
     Route: 064
     Dates: start: 20011227, end: 20011228
  33. DEMEROL [Suspect]
     Active Substance: MEPERIDINE HYDROCHLORIDE
     Route: 064
     Dates: start: 20020323, end: 20020325
  34. CANNABIS SATIVA SUBSP. INDICA TOP [Suspect]
     Active Substance: CANNABIS SATIVA SUBSP. INDICA TOP
     Dosage: IN HIGH SCHOOL
     Route: 064
  35. CANNABIS SATIVA SUBSP. INDICA TOP [Suspect]
     Active Substance: CANNABIS SATIVA SUBSP. INDICA TOP
     Dosage: DRUG TAKEN BY FATHER
     Route: 064
     Dates: start: 2005
  36. VICODIN [Suspect]
     Active Substance: ACETAMINOPHEN\HYDROCODONE BITARTRATE
     Indication: Complex regional pain syndrome
     Route: 064
  37. VICODIN [Suspect]
     Active Substance: ACETAMINOPHEN\HYDROCODONE BITARTRATE
     Indication: Complex regional pain syndrome
  38. STADOL [Suspect]
     Active Substance: BUTORPHANOL TARTRATE
     Route: 064
     Dates: start: 20050902
  39. HYDROMORPHONE [Suspect]
     Active Substance: HYDROMORPHONE
     Indication: Abdominal pain
     Dosage: 6-JUN-2000
     Route: 064
     Dates: start: 20000602
  40. XANAX [Suspect]
     Active Substance: ALPRAZOLAM
     Indication: Anxiety
     Route: 064
     Dates: start: 2001
  41. ALPRAZOLAM [Suspect]
     Active Substance: ALPRAZOLAM
     Indication: Anxiety
     Route: 064
     Dates: start: 200211
  42. ALPRAZOLAM [Suspect]
     Active Substance: ALPRAZOLAM
     Indication: Anxiety
     Route: 064
     Dates: start: 200206
  43. ALPRAZOLAM [Suspect]
     Active Substance: ALPRAZOLAM
     Route: 064
     Dates: start: 200302
  44. VITAMINS [Concomitant]
     Active Substance: VITAMINS
     Route: 064
  45. IRON [Concomitant]
     Active Substance: IRON
     Route: 064
  46. GABAPENTIN [Concomitant]
     Active Substance: GABAPENTIN
     Indication: Complex regional pain syndrome
     Route: 064
  47. GABAPENTIN [Concomitant]
     Active Substance: GABAPENTIN
     Indication: Complex regional pain syndrome
  48. NEURONTIN [Concomitant]
     Active Substance: GABAPENTIN
     Indication: Complex regional pain syndrome
     Route: 064
     Dates: start: 20020323
  49. NEURONTIN [Concomitant]
     Active Substance: GABAPENTIN
     Indication: Complex regional pain syndrome
  50. CATAPRES [Concomitant]
     Active Substance: CLONIDINE HYDROCHLORIDE
     Indication: Complex regional pain syndrome
     Route: 064
  51. CATAPRES [Concomitant]
     Active Substance: CLONIDINE HYDROCHLORIDE
     Indication: Complex regional pain syndrome
  52. LIDODERM [Concomitant]
     Active Substance: LIDOCAINE
     Indication: Complex regional pain syndrome
     Route: 064
  53. LIDODERM [Concomitant]
     Active Substance: LIDOCAINE
     Indication: Complex regional pain syndrome
  54. PHENARGAN [Concomitant]
     Dosage: CONTINUING
     Route: 064
  55. PROMETHAZINE [Concomitant]
     Active Substance: PROMETHAZINE HYDROCHLORIDE
     Route: 064
  56. GUAIFENESIN PSE [Concomitant]
     Dosage: 600-120
     Route: 064
     Dates: start: 20050331
  57. AUGMENTIN [Concomitant]
     Active Substance: AMOXICILLIN\CLAVULANATE POTASSIUM
     Dosage: XR
     Route: 064
     Dates: start: 20050331
  58. ACIPHEX [Concomitant]
     Active Substance: RABEPRAZOLE SODIUM
     Dosage: DR
     Route: 064
     Dates: start: 20050428
  59. NITROFURAN MONO [Concomitant]
     Route: 064
     Dates: start: 20050224
  60. CALNATE [Concomitant]
     Route: 064
     Dates: start: 20050407
  61. ZOFRAN [Concomitant]
     Active Substance: ONDANSETRON HYDROCHLORIDE
     Route: 064

REACTIONS (66)
  - Drug withdrawal syndrome neonatal [Recovered/Resolved]
  - Umbilical cord around neck [Unknown]
  - Feeling jittery [Recovered/Resolved]
  - Irritability [Recovered/Resolved]
  - Hypoglycaemia neonatal [Recovered/Resolved]
  - Neonatal dyspnoea [Recovered/Resolved]
  - Foetal distress syndrome [Recovered/Resolved]
  - Meconium aspiration syndrome [Recovered/Resolved]
  - Autism spectrum disorder [Not Recovered/Not Resolved]
  - Attention deficit hyperactivity disorder [Unknown]
  - Intellectual disability [Not Recovered/Not Resolved]
  - Developmental delay [Not Recovered/Not Resolved]
  - Major depression [Unknown]
  - Dysarthria [Recovering/Resolving]
  - Speech disorder developmental [Not Recovered/Not Resolved]
  - Croup infectious [Not Recovered/Not Resolved]
  - Cough [Recovered/Resolved]
  - Vomiting [Recovering/Resolving]
  - Gastrooesophageal reflux disease [Not Recovered/Not Resolved]
  - Reflux gastritis [Not Recovered/Not Resolved]
  - Reflux laryngitis [Recovering/Resolving]
  - Bronchospasm [Recovering/Resolving]
  - Laryngeal oedema [Recovering/Resolving]
  - Oesophagitis [Recovering/Resolving]
  - Duodenal ulcer [Recovering/Resolving]
  - Duodenitis [Recovering/Resolving]
  - Helicobacter gastritis [Not Recovered/Not Resolved]
  - Pyloric stenosis [Recovered/Resolved]
  - Bronchitis chronic [Not Recovered/Not Resolved]
  - Chronic sinusitis [Recovering/Resolving]
  - Asthma [Recovering/Resolving]
  - Nasal congestion [Recovered/Resolved]
  - Dyspnoea [Recovered/Resolved]
  - Chest pain [Recovering/Resolving]
  - Chest discomfort [Recovering/Resolving]
  - Wheezing [Recovered/Resolved]
  - Illness [Unknown]
  - Dysphagia [Recovered/Resolved]
  - Tic [Unknown]
  - Abnormal behaviour [Unknown]
  - Change in sustained attention [Recovering/Resolving]
  - Insomnia [Unknown]
  - Mood swings [Unknown]
  - Aggression [Unknown]
  - Behaviour disorder [Not Recovered/Not Resolved]
  - Agoraphobia [Unknown]
  - School refusal [Not Recovered/Not Resolved]
  - Disorientation [Unknown]
  - Poor sucking reflex [Recovered/Resolved]
  - Poor feeding infant [Recovered/Resolved]
  - Impaired reasoning [Not Recovered/Not Resolved]
  - Motor developmental delay [Not Recovered/Not Resolved]
  - Fine motor delay [Unknown]
  - Language disorder [Not Recovered/Not Resolved]
  - Communication disorder [Unknown]
  - Loss of personal independence in daily activities [Unknown]
  - Social avoidant behaviour [Recovering/Resolving]
  - Selective eating disorder [Unknown]
  - Foetal movement disorder [Unknown]
  - Separation anxiety disorder [Not Recovered/Not Resolved]
  - Sensory processing disorder [Not Recovered/Not Resolved]
  - Panic disorder [Unknown]
  - Apraxia [Unknown]
  - Premature baby [Unknown]
  - Foetal exposure during pregnancy [Unknown]
  - Paternal exposure during pregnancy [Unknown]

NARRATIVE: CASE EVENT DATE: 20050101
